FAERS Safety Report 5156149-1 (Version None)
Quarter: 2006Q4

REPORT INFORMATION
  Report Type: 
  Country: None (occurrence: None)
  Receive Date: 20061122
  Receipt Date: 20061108
  Transmission Date: 20070319
  Serious: Yes (Hospitalization, Other)
  Sender: FDA-Public Use
  Company Number: JP-AVENTIS-200613522JP

PATIENT
  Age: 77 Year
  Sex: Male

DRUGS (3)
  1. GLYBURIDE [Suspect]
     Indication: DIABETES MELLITUS
     Route: 048
     Dates: start: 20030101
  2. BUFORMIN HYDROCHLORIDE [Suspect]
     Dates: start: 20030101
  3. BUFORMIN HYDROCHLORIDE [Suspect]
     Dates: start: 20041001

REACTIONS (6)
  - HYPOGLYCAEMIA [None]
  - INTESTINAL ISCHAEMIA [None]
  - LACTIC ACIDOSIS [None]
  - MULTI-ORGAN DISORDER [None]
  - NECROSIS [None]
  - SHOCK [None]
